FAERS Safety Report 5322107-7 (Version None)
Quarter: 2007Q2

REPORT INFORMATION
  Report Type: 
  Country: None (occurrence: None)
  Receive Date: 20070507
  Receipt Date: 20070430
  Transmission Date: 20071010
  Serious: Yes (Life-Threatening, Hospitalization, Disabling)
  Sender: FDA-Public Use
  Company Number: SP01210

PATIENT
  Age: 62 Year
  Sex: Female
  Weight: 55.3388 kg

DRUGS (10)
  1. OSMOPREP [Suspect]
     Indication: COLONOSCOPY
     Dosage: 48 GM, ORAL
     Route: 048
     Dates: start: 20070412, end: 20070412
  2. MESALAZINE (TABLETS) [Concomitant]
  3. LEVOTHYROXINE SODIUM [Concomitant]
  4. RALOXIFENE HCL [Concomitant]
  5. SULFASALAZINE [Concomitant]
  6. LEVSIN [Concomitant]
  7. PROTONIX [Concomitant]
  8. CELEBREX [Concomitant]
  9. LOMOTIL [Concomitant]
  10. VICODIN [Concomitant]

REACTIONS (13)
  - ASTHENIA [None]
  - DIARRHOEA [None]
  - ELECTROLYTE IMBALANCE [None]
  - HYPERPHOSPHATAEMIA [None]
  - HYPOAESTHESIA [None]
  - HYPOKALAEMIA [None]
  - HYPOMAGNESAEMIA [None]
  - HYPOVOLAEMIA [None]
  - MALAISE [None]
  - NAUSEA [None]
  - RENAL FAILURE ACUTE [None]
  - RENAL FAILURE CHRONIC [None]
  - VOMITING [None]
